FAERS Safety Report 6156968-9 (Version None)
Quarter: 2009Q2

REPORT INFORMATION
  Report Type: 
  Country: None (occurrence: None)
  Receive Date: 20090416
  Receipt Date: 20090413
  Transmission Date: 20091009
  Serious: Yes (Death, Hospitalization)
  Sender: FDA-Public Use
  Company Number: B0570010A

PATIENT
  Sex: Female
  Weight: 6.4 kg

DRUGS (3)
  1. ZIDOVUDINE [Suspect]
     Indication: HIV INFECTION
     Dosage: 120MG TWICE PER DAY
     Route: 048
     Dates: start: 20090116, end: 20090207
  2. LAMIVUDINE [Suspect]
     Indication: HIV INFECTION
     Route: 048
     Dates: start: 20090116, end: 20090207
  3. KALETRA [Suspect]
     Indication: HIV INFECTION
     Dosage: 160MG TWICE PER DAY
     Dates: start: 20090116, end: 20090207

REACTIONS (7)
  - ANAEMIA [None]
  - BRONCHOPNEUMONIA [None]
  - CARDIAC FAILURE CONGESTIVE [None]
  - DECREASED APPETITE [None]
  - GRUNTING [None]
  - RESPIRATORY RATE INCREASED [None]
  - VOMITING [None]
